FAERS Safety Report 9618970 (Version 3)
Quarter: 2014Q1

REPORT INFORMATION
  Report Type: Spontaneous
  Country: US (occurrence: US)
  Receive Date: 20131014
  Receipt Date: 20140114
  Transmission Date: 20141002
  Serious: No
  Sender: FDA-Public Use
  Company Number: US-PFIZER INC-2013293235

PATIENT
  Age: 63 Year
  Sex: Female
  Weight: 68.03 kg

DRUGS (21)
  1. LYRICA [Suspect]
     Indication: FIBROMYALGIA
     Dosage: 150 MG, 2X/DAY
     Route: 048
     Dates: start: 2010
  2. LYRICA [Suspect]
     Indication: RHEUMATOID ARTHRITIS
     Dosage: 150 MG, 2X/DAY
     Route: 048
  3. HYDROCODONE W/ACETAMINOPHEN [Concomitant]
     Dosage: 5-325 MG  ONE TABLET EVERY 6 HOURS AS NEEDED
  4. ALPRAZOLAM [Concomitant]
     Dosage: 1 MG, 2X/DAY
     Route: 048
  5. CARDIZEM CD [Concomitant]
     Dosage: 240 MG, DAILY
     Route: 048
  6. METOPROLOL TARTRATE [Concomitant]
     Dosage: 100 MG, 2X/DAY
     Route: 048
  7. BENICAR [Concomitant]
     Dosage: 40 MG, DAILY
     Route: 048
  8. METFORMIN HYDROCHLORIDE [Concomitant]
     Dosage: 850 MG, 2X/DAY
     Route: 048
  9. GLIPIZIDE XL [Concomitant]
     Dosage: 10 MG, 1X/DAY (1 TABLET IN THE MORNING WITH BREAKFAST
     Route: 048
  10. PRAVASTATIN SODIUM [Concomitant]
     Dosage: 20 MG, 1X/DAY (1 TAB AT BEDTIME)
     Route: 048
  11. OMEPRAZOLE [Concomitant]
     Indication: GASTROOESOPHAGEAL REFLUX DISEASE
     Dosage: 20 MG, DAILY
     Route: 048
  12. FLEXERIL [Concomitant]
     Indication: MUSCLE SPASMS
     Dosage: 0.5 MG, 3X/DAY AS NEEDED
     Route: 048
  13. ZYRTEC [Concomitant]
     Dosage: 10 MG, DAILY
     Route: 048
  14. ESTRACE [Concomitant]
     Dosage: 0.1 MG/GM CREAM INSERT VAGINALLY DAILY
     Route: 067
  15. MAGNESIUM [Concomitant]
     Dosage: 400 MG, DAILY (200 MG 2 TABS DAILY)
     Route: 048
  16. MULTIVITAMINS [Concomitant]
     Dosage: ONE TABLET DAILY
  17. CALCIUM + VIT D [Concomitant]
     Dosage: UNK
     Route: 048
  18. IBUPROFEN [Concomitant]
     Dosage: 800 MG, 3X/DAY (WITH FOOD)
     Route: 048
  19. FLUOXETINE HYDROCHLORIDE [Concomitant]
     Indication: ANXIETY
     Dosage: 40 MG, DAILY
     Route: 048
  20. FOLIC ACID [Concomitant]
     Dosage: 1 MG, DAILY
     Route: 048
  21. METHOTREXATE [Concomitant]
     Indication: ARTHRITIS
     Dosage: 2.5 MG, 1X/DAY
     Route: 048

REACTIONS (4)
  - Off label use [Not Recovered/Not Resolved]
  - Pre-existing condition improved [Unknown]
  - Therapeutic response unexpected [Unknown]
  - Withdrawal syndrome [Unknown]
